APPROVED DRUG PRODUCT: DIETHYLPROPION HYDROCHLORIDE
Active Ingredient: DIETHYLPROPION HYDROCHLORIDE
Strength: 25MG
Dosage Form/Route: TABLET;ORAL
Application: A085916 | Product #001
Applicant: SANDOZ INC
Approved: Approved Prior to Jan 1, 1982 | RLD: No | RS: No | Type: DISCN